FAERS Safety Report 6049225-2 (Version None)
Quarter: 2009Q1

REPORT INFORMATION
  Report Type: 
  Country: None (occurrence: None)
  Receive Date: 20090123
  Receipt Date: 20090109
  Transmission Date: 20090719
  Serious: Yes (Other)
  Sender: FDA-Public Use
  Company Number: FR-GENENTECH-272047

PATIENT
  Age: 39 Year
  Sex: Female

DRUGS (1)
  1. MABTHERA [Suspect]
     Indication: VASCULITIS
     Dosage: 375 MG/M2, ^1 CYCLE OVER 4 INFUSIONS^
     Route: 042

REACTIONS (1)
  - MACULAR OEDEMA [None]
